FAERS Safety Report 14001417 (Version 1)
Quarter: 2017Q3

REPORT INFORMATION
  Report Type: Spontaneous
  Country: NL (occurrence: NL)
  Receive Date: 20170922
  Receipt Date: 20170922
  Transmission Date: 20171128
  Serious: Yes (Other)
  Sender: FDA-Public Use
  Company Number: NL-BAYER-2017-125618

PATIENT
  Age: 75 Year
  Sex: Female

DRUGS (1)
  1. ULTRAVIST [Suspect]
     Active Substance: IOPROMIDE
     Indication: COMPUTERISED TOMOGRAM ABDOMEN
     Dosage: UNK UNK, ONCE
     Dates: start: 20170620, end: 20170620

REACTIONS (4)
  - Erythema [None]
  - Lip swelling [None]
  - Urticaria [None]
  - Circulatory collapse [None]

NARRATIVE: CASE EVENT DATE: 20170620
